FAERS Safety Report 13704281 (Version 1)
Quarter: 2017Q2

REPORT INFORMATION
  Report Type: Spontaneous
  Country: US (occurrence: US)
  Receive Date: 20170629
  Receipt Date: 20170629
  Transmission Date: 20170830
  Serious: No
  Sender: FDA-Public Use
  Company Number: None

PATIENT
  Age: 51 Year
  Sex: Female

DRUGS (7)
  1. RESTASIS [Concomitant]
     Active Substance: CYCLOSPORINE
  2. URSODIOL. [Concomitant]
     Active Substance: URSODIOL
  3. HYDROCODONE [Concomitant]
     Active Substance: HYDROCODONE
  4. ASPIRIN. [Concomitant]
     Active Substance: ASPIRIN
  5. OCALIVA [Suspect]
     Active Substance: OBETICHOLIC ACID
     Indication: BILIARY CIRRHOSIS PRIMARY
     Route: 048
     Dates: start: 20170515
  6. METAMUCIL [Concomitant]
     Active Substance: PLANTAGO SEED
  7. MYCOPHENOLAT [Concomitant]
     Active Substance: MYCOPHENOLATE MOFETIL

REACTIONS (6)
  - Toe operation [None]
  - Drug dose omission [None]
  - Constipation [None]
  - Confusional state [None]
  - Bunion operation [None]
  - Dysgeusia [None]

NARRATIVE: CASE EVENT DATE: 201706
